FAERS Safety Report 4461241-0 (Version None)
Quarter: 2004Q3

REPORT INFORMATION
  Report Type: 
  Country: None (occurrence: None)
  Receive Date: 20040928
  Receipt Date: 20040922
  Transmission Date: 20050211
  Serious: Yes (Hospitalization)
  Sender: FDA-Public Use
  Company Number: FR-ROCHE-381148

PATIENT
  Age: 43 Year
  Sex: Male

DRUGS (8)
  1. VALIUM [Suspect]
     Route: 048
     Dates: start: 20040726
  2. LEPONEX [Suspect]
     Route: 048
     Dates: start: 20040817
  3. LEPONEX [Suspect]
     Route: 048
     Dates: start: 20040726
  4. LEPONEX [Suspect]
     Route: 048
  5. LEPONEX [Suspect]
     Route: 048
  6. LEPONEX [Suspect]
     Route: 048
  7. LEPONEX [Suspect]
     Route: 048
     Dates: start: 20040802
  8. LEPONEX [Suspect]
     Route: 048

REACTIONS (3)
  - BLOOD AMYLASE INCREASED [None]
  - PANCREATITIS [None]
  - PYREXIA [None]
